FAERS Safety Report 6835360-5 (Version None)
Quarter: 2010Q3

REPORT INFORMATION
  Report Type: 
  Country: None (occurrence: None)
  Receive Date: 20100713
  Receipt Date: 20100707
  Transmission Date: 20110219
  Serious: Yes (Hospitalization)
  Sender: FDA-Public Use
  Company Number: CZ-ASTRAZENECA-2010SE31978

PATIENT
  Age: 20 Year
  Sex: Female
  Weight: 57 kg

DRUGS (1)
  1. RHINOCORT [Suspect]
     Indication: RHINITIS ALLERGIC
     Route: 045
     Dates: start: 20100627, end: 20100628

REACTIONS (5)
  - DRUG EXPOSURE DURING PREGNANCY [None]
  - EYELID OEDEMA [None]
  - NASAL CONGESTION [None]
  - RASH MACULO-PAPULAR [None]
  - SEASONAL ALLERGY [None]
